FAERS Safety Report 17346958 (Version 12)
Quarter: 2023Q4

REPORT INFORMATION
  Report Type: Report from Study
  Country: AT (occurrence: AT)
  Receive Date: 20200130
  Receipt Date: 20231115
  Transmission Date: 20240109
  Serious: Yes (Hospitalization, Other)
  Sender: FDA-Public Use
  Company Number: AT-CELLTRION INC.-2019AT020269

PATIENT

DRUGS (43)
  1. HERCEPTIN [Suspect]
     Active Substance: TRASTUZUMAB
     Indication: Breast cancer metastatic
     Dosage: 8 MG/KG, EVERY 3 WEEKS (MOST RECENT DOSE PRIOR TO THE EVENT: 17/MAY/2018 MOST RECENT DOSE PRIOR TO T
     Route: 042
     Dates: start: 20180425, end: 20180425
  2. HERCEPTIN [Suspect]
     Active Substance: TRASTUZUMAB
     Dosage: 1 UNK, EVERY 3 WEEKS, MAINTENANCE DOSE
     Route: 042
     Dates: start: 20180517
  3. HERCEPTIN [Suspect]
     Active Substance: TRASTUZUMAB
     Dosage: EVERY 3 WEEKS (MOST RECENT DOSE PRIOR TO THE EVENT: 17/MAY/2018, MOST RECENT DOSE PRIOR TO THE EVENT
     Route: 041
     Dates: start: 20180425
  4. HERCEPTIN [Suspect]
     Active Substance: TRASTUZUMAB
     Dosage: 6 MG/KG EVERY 3 WEEKS, MOST RECENT DOSE RECEIVED ON 01/FEB/2019
     Route: 042
     Dates: start: 20180517
  5. TRASTUZUMAB [Suspect]
     Active Substance: TRASTUZUMAB
     Indication: Breast cancer metastatic
     Dosage: 8 MG/KG, EVERY 3 WEEKS (MOST RECENT DOSE PRIOR TO THE EVENT: 17/MAY/2018 MOST RECENT DOSE PRIOR TO T
     Route: 042
     Dates: start: 20180425, end: 20180425
  6. TRASTUZUMAB [Suspect]
     Active Substance: TRASTUZUMAB
     Dosage: 1 UNK, EVERY 3 WEEKS, MAINTENANCE DOSE
     Route: 042
     Dates: start: 20180517
  7. TRASTUZUMAB [Suspect]
     Active Substance: TRASTUZUMAB
     Dosage: EVERY 3 WEEKS (MOST RECENT DOSE PRIOR TO THE EVENT: 17/MAY/2018, MOST RECENT DOSE PRIOR TO THE EVENT
     Route: 041
     Dates: start: 20180425
  8. TRASTUZUMAB [Suspect]
     Active Substance: TRASTUZUMAB
     Dosage: 6 MG/KG EVERY 3 WEEKS, MOST RECENT DOSE RECEIVED ON 01/FEB/2019
     Route: 042
     Dates: start: 20180517
  9. CAPECITABINE [Suspect]
     Active Substance: CAPECITABINE
     Indication: Breast cancer metastatic
     Dosage: 500 MG, MOST RECENT DOSE RECEIVED ON 16/NOV/2019
     Route: 048
     Dates: start: 20190724
  10. DENOSUMAB [Suspect]
     Active Substance: DENOSUMAB
     Indication: Breast cancer metastatic
     Dosage: 120 MG, EVERY 4 WEEKS
     Route: 058
     Dates: start: 20180502
  11. DENOSUMAB [Suspect]
     Active Substance: DENOSUMAB
     Dosage: 120 MG EVERY 4 WEEKS (MOST RECENT DOSE RECEIVED ON 16/NOV/2019)
     Route: 058
     Dates: start: 20180618, end: 20191116
  12. DOCETAXEL [Suspect]
     Active Substance: DOCETAXEL\DOCETAXEL ANHYDROUS
     Indication: Breast cancer metastatic
     Dosage: 75 MG/M2, EVERY 3 WEEKS
     Route: 042
     Dates: start: 20180426, end: 20180817
  13. DOCETAXEL [Suspect]
     Active Substance: DOCETAXEL\DOCETAXEL ANHYDROUS
     Dosage: 100 MG/M2, EVERY 3 WEEKS (MOST RECENT DOSE RECEIVED ON 17/AUG/2018)
     Route: 042
     Dates: start: 20180612
  14. DOCETAXEL [Suspect]
     Active Substance: DOCETAXEL\DOCETAXEL ANHYDROUS
     Dosage: 75 MG/M2 EVERY 3 WEEKS
     Route: 042
     Dates: start: 20180426, end: 20180518
  15. PERTUZUMAB [Suspect]
     Active Substance: PERTUZUMAB
     Indication: Breast cancer metastatic
     Dosage: 840 MG/KG, EVERY 3 WEEKS; LOADING DOSE (MOST RECENT DOSE PRIOR TO THE EVENT: 17/MAY/2018)
     Route: 042
     Dates: start: 20180425, end: 20180425
  16. PERTUZUMAB [Suspect]
     Active Substance: PERTUZUMAB
     Dosage: 1 UNK, EVERY 3 WEEKS, MAINTENANCE DOSE
     Route: 042
     Dates: start: 20180517
  17. PERTUZUMAB [Suspect]
     Active Substance: PERTUZUMAB
     Dosage: 840 MG, EVERY 3 WEEKS (MOST RECENT DOSE PRIOR TO THE EVENT: 17/MAY/2018)
     Route: 042
     Dates: start: 20180425
  18. PERTUZUMAB [Suspect]
     Active Substance: PERTUZUMAB
     Dosage: 420 MG EVERY 3 WEEKS (MOST RECENT DOSE PRIOR TO THE EVENT: 01/FEB/2019)
     Route: 042
     Dates: start: 20180517
  19. TAXOTERE [Suspect]
     Active Substance: DOCETAXEL
     Indication: HER2 positive breast cancer
     Dosage: 75 MG/M2, EVERY 3 WEEKS
     Route: 042
     Dates: start: 20180426, end: 20180817
  20. TAXOTERE [Suspect]
     Active Substance: DOCETAXEL
     Indication: Breast cancer metastatic
  21. TAXOTERE [Suspect]
     Active Substance: DOCETAXEL
     Indication: Breast cancer
  22. ADO-TRASTUZUMAB EMTANSINE [Suspect]
     Active Substance: ADO-TRASTUZUMAB EMTANSINE
     Indication: Breast cancer metastatic
     Dosage: 194.4 MG/KG, EVERY 3 WEEKS (ON 19/JUL/2019, MOST RECENT DOSE OF TRASTUZUMAB EMTANSINE)
     Route: 042
     Dates: start: 20190222, end: 20190719
  23. XGEVA [Suspect]
     Active Substance: DENOSUMAB
     Indication: Breast cancer metastatic
     Dosage: UNK
     Route: 065
     Dates: start: 20180618, end: 20191116
  24. XGEVA [Suspect]
     Active Substance: DENOSUMAB
     Dosage: 120 MG, Q4WEEKS
     Route: 058
     Dates: start: 20180502
  25. CIPROFLOXACIN [Concomitant]
     Active Substance: CIPROFLOXACIN
     Dosage: ONGOING = NOT CHECKED
     Route: 065
     Dates: end: 20191116
  26. CIPROFLOXACIN [Concomitant]
     Active Substance: CIPROFLOXACIN
     Dosage: ONGOING = NOT CHECKED
     Dates: end: 20191116
  27. DIPHENHYDRAMINE HYDROCHLORIDE [Concomitant]
     Active Substance: DIPHENHYDRAMINE HYDROCHLORIDE
     Dosage: UNK
     Dates: start: 20180426, end: 20180817
  28. DRONABINOL [Concomitant]
     Active Substance: DRONABINOL
     Dosage: ONGOING = NOT CHECKED (LAST ADMINISTRATION DATE: 16 NOV 2019)
     Route: 065
     Dates: end: 20191116
  29. DRONABINOL [Concomitant]
     Active Substance: DRONABINOL
     Dosage: ONGOING = NOT CHECKED (LAST ADMINISTRATION DATE: 16 NOV 2019)
     Dates: end: 20191116
  30. EMEND [Concomitant]
     Active Substance: APREPITANT
     Dosage: UNK
     Dates: start: 20180426, end: 20180817
  31. EMEND [Concomitant]
     Active Substance: APREPITANT
     Dosage: UNK
  32. LOPERAMIDE HYDROCHLORIDE [Concomitant]
     Active Substance: LOPERAMIDE HYDROCHLORIDE
     Indication: Diarrhoea
     Dosage: ONGOING = NOT CHECKED
     Route: 065
     Dates: start: 20180611, end: 20191116
  33. LOPERAMIDE HYDROCHLORIDE [Concomitant]
     Active Substance: LOPERAMIDE HYDROCHLORIDE
     Dosage: ONGOING = NOT CHECKED
     Dates: start: 20180611, end: 20191116
  34. DEXAMETHASONE [Concomitant]
     Active Substance: DEXAMETHASONE
     Dosage: ONGOING = NOT CHECKED
     Route: 065
     Dates: start: 20190222, end: 20190719
  35. DEXAMETHASONE [Concomitant]
     Active Substance: DEXAMETHASONE
     Dosage: UNK
     Dates: start: 20180426, end: 20180817
  36. PANTOPRAZOLE SODIUM [Concomitant]
     Active Substance: PANTOPRAZOLE SODIUM
     Dosage: ONGOING = CHECKED
     Dates: end: 20191116
  37. PANTOPRAZOLE SODIUM [Concomitant]
     Active Substance: PANTOPRAZOLE SODIUM
     Dosage: ONGOING = CHECKED (LAST ADMINISTRATION DATE: 16/11/2019)
     Route: 065
  38. PANTOPRAZOLE SODIUM [Concomitant]
     Active Substance: PANTOPRAZOLE SODIUM
     Dosage: ONGOING = CHECKED
     Route: 065
  39. PENTASA [Concomitant]
     Active Substance: MESALAMINE
     Dosage: ONGOING = NOT CHECKED (STOP DATE: 16 NOV 2019)
     Route: 065
     Dates: end: 20191116
  40. RANITIDINE HYDROCHLORIDE [Concomitant]
     Active Substance: RANITIDINE HYDROCHLORIDE
     Dosage: UNK
     Dates: start: 20180426, end: 20180817
  41. RANITIDINE HYDROCHLORIDE [Concomitant]
     Active Substance: RANITIDINE HYDROCHLORIDE
     Dosage: UNK
  42. ZOFRAN [Concomitant]
     Active Substance: ONDANSETRON HYDROCHLORIDE
     Dosage: ONGOING = NOT CHECKED
     Route: 065
     Dates: start: 20190222, end: 20190719
  43. ZOFRAN [Concomitant]
     Active Substance: ONDANSETRON HYDROCHLORIDE
     Dosage: ONGOING = NOT CHECKED
     Dates: start: 20180426, end: 20180817

REACTIONS (14)
  - Abdominal distension [Not Recovered/Not Resolved]
  - Hypokalaemia [Not Recovered/Not Resolved]
  - Thoracic vertebral fracture [Not Recovered/Not Resolved]
  - Dyspnoea [Not Recovered/Not Resolved]
  - Fistula [Recovered/Resolved]
  - General physical health deterioration [Recovered/Resolved]
  - General physical health deterioration [Not Recovered/Not Resolved]
  - Anxiety [Not Recovered/Not Resolved]
  - Diarrhoea [Recovered/Resolved]
  - Diarrhoea [Not Recovered/Not Resolved]
  - Headache [Not Recovered/Not Resolved]
  - Oedema peripheral [Not Recovered/Not Resolved]
  - Vomiting [Not Recovered/Not Resolved]
  - Weight decreased [Recovered/Resolved]

NARRATIVE: CASE EVENT DATE: 20180611
